FAERS Safety Report 6695322-8 (Version None)
Quarter: 2010Q2

REPORT INFORMATION
  Report Type: 
  Country: None (occurrence: None)
  Receive Date: 20100423
  Receipt Date: 20100412
  Transmission Date: 20101027
  Serious: Yes (Hospitalization)
  Sender: FDA-Public Use
  Company Number: JP-AMGEN-KDC398658

PATIENT
  Sex: Male
  Weight: 71 kg

DRUGS (21)
  1. PANITUMUMAB [Suspect]
     Indication: SQUAMOUS CELL CARCINOMA
     Route: 041
     Dates: start: 20081112, end: 20100209
  2. PANITUMUMAB [Suspect]
     Route: 041
     Dates: start: 20090512
  3. PANITUMUMAB [Suspect]
     Route: 041
     Dates: start: 20090910
  4. PANITUMUMAB [Suspect]
     Route: 041
     Dates: start: 20091203
  5. PANITUMUMAB [Suspect]
     Route: 041
     Dates: start: 20100121, end: 20100209
  6. BRIPLATIN [Concomitant]
     Indication: SQUAMOUS CELL CARCINOMA
     Dosage: UNKNOWN
     Route: 041
     Dates: start: 20081112, end: 20090327
  7. FLUOROURACIL [Concomitant]
     Indication: SQUAMOUS CELL CARCINOMA
     Dosage: UNKNOWN
     Route: 041
     Dates: start: 20081112, end: 20090331
  8. PANTOSIN [Concomitant]
     Indication: CONSTIPATION
     Dosage: 600MG/DAY
     Route: 048
  9. MAGMITT [Concomitant]
     Indication: CONSTIPATION
     Dosage: 990MG/DAY
     Route: 048
  10. LAMISIL [Concomitant]
     Indication: TINEA INFECTION
     Dosage: UNKNOWN, AS REQUIRED
     Route: 062
  11. RINDERON-VG [Concomitant]
     Indication: RASH
     Dosage: UNKNOWN, AS REQUIRED
     Route: 062
  12. GENTAMICIN [Concomitant]
     Indication: RASH
     Dosage: UNKNOWN, AS REQUIRED
     Route: 062
  13. MYSER [Concomitant]
     Indication: RASH
     Dosage: UNKNOWN, AS REQUIRED
     Route: 062
  14. HIRUDOID [Concomitant]
     Indication: DRY SKIN
     Dosage: UNKNOWN, AS REQUIRED
     Route: 062
  15. WHITE PETROLEUM [Concomitant]
     Indication: DRY SKIN
     Dosage: UNKNOWN, AS REQUIRED
     Route: 062
  16. ALMETA [Concomitant]
     Indication: RASH
     Dosage: UNKNOWN, AS REQUIRED
     Route: 062
  17. KENALOG [Concomitant]
     Indication: STOMATITIS
     Dosage: UNKNOWN, AS REQUIRED
     Route: 048
  18. KERATINAMIN [Concomitant]
     Indication: PRURITUS
     Dosage: UNKNOWN, AS REQUIRED
     Route: 062
  19. HACHIAZULE [Concomitant]
     Indication: STOMATITIS
     Dosage: UNKNOWN, AS REQUIRED
     Route: 062
  20. XYLOCAINE [Concomitant]
     Indication: STOMATITIS
     Dosage: UNKNOWN, AS REQUIRED
     Route: 062
  21. ENSURE LIQUID [Concomitant]
     Indication: MEDICAL DIET
     Route: 048

REACTIONS (2)
  - SPINAL CORD INJURY [None]
  - SPINAL SHOCK [None]
